FAERS Safety Report 5769671-1 (Version None)
Quarter: 2008Q2

REPORT INFORMATION
  Report Type: 
  Country: None (occurrence: None)
  Receive Date: 20080612
  Receipt Date: 20080403
  Transmission Date: 20081010
  Serious: No
  Sender: FDA-Public Use
  Company Number: US-ABBOTT-08P-163-0445785-00

PATIENT
  Sex: Male
  Weight: 70.37 kg

DRUGS (3)
  1. HUMIRA [Suspect]
     Indication: CROHN'S DISEASE
     Route: 058
     Dates: start: 20070301
  2. ACETAMINOPHEN W/ CODEINE [Concomitant]
     Indication: PAIN
     Route: 048
  3. ALPRAZOLAM [Concomitant]
     Indication: SLEEP DISORDER THERAPY
     Route: 048

REACTIONS (1)
  - ACCIDENTAL EXPOSURE [None]
